FAERS Safety Report 9585848 (Version 1)
Quarter: 2013Q4

REPORT INFORMATION
  Report Type: Spontaneous
  Country: TR (occurrence: None)
  Receive Date: 20131001
  Receipt Date: 20131001
  Transmission Date: 20140711
  Serious: Yes (Hospitalization)
  Sender: FDA-Public Use
  Company Number: FK201304315

PATIENT
  Age: 55 Year
  Sex: Male

DRUGS (12)
  1. CISPLATIN (CISPLATIN) [Suspect]
     Indication: NON-SMALL CELL LUNG CANCER
  2. CISPLATIN (CISPLATIN) [Suspect]
     Indication: METASTASES TO BONE
  3. CISPLATIN (CISPLATIN) [Suspect]
     Indication: METASTASES TO LYMPH NODES
  4. CISPLATIN (CISPLATIN) [Suspect]
     Indication: PHARYNGEAL DISORDER
  5. FLUOROURACIL (FLUOROURACIL) [Suspect]
     Indication: NON-SMALL CELL LUNG CANCER
     Dosage: 750 MG/M2, DAY 1-5
  6. FLUOROURACIL (FLUOROURACIL) [Suspect]
     Indication: METASTASES TO BONE
     Dosage: 750 MG/M2, DAY 1-5
  7. FLUOROURACIL (FLUOROURACIL) [Suspect]
     Indication: METASTASES TO LYMPH NODES
     Dosage: 750 MG/M2, DAY 1-5
  8. FLUOROURACIL (FLUOROURACIL) [Suspect]
     Indication: PHARYNGEAL DISORDER
     Dosage: 750 MG/M2, DAY 1-5
  9. DOCETAXEL (DOCETAXEL) [Suspect]
     Indication: NON-SMALL CELL LUNG CANCER
  10. DOCETAXEL (DOCETAXEL) [Suspect]
     Indication: METASTASES TO BONE
  11. DOCETAXEL (DOCETAXEL) [Suspect]
     Indication: METASTASES TO LYMPH NODES
  12. DOCETAXEL (DOCETAXEL) [Suspect]
     Indication: PHARYNGEAL DISORDER

REACTIONS (1)
  - Pericarditis [None]
